FAERS Safety Report 9519956 (Version 1)
Quarter: 2013Q1

REPORT INFORMATION
  Report Type: Spontaneous
  Country: US (occurrence: None)
  Receive Date: 20130305
  Receipt Date: 20130305
  Transmission Date: 20140127
  Serious: Yes (Other)
  Sender: FDA-Public Use
  Company Number: 163-21880-12092487

PATIENT
  Age: 51 Year
  Sex: Female

DRUGS (15)
  1. REVLIMID [Suspect]
     Indication: PLASMA CELL MYELOMA
     Dosage: 5 MG. 21 IN 21 D, PO?
     Route: 048
     Dates: start: 20111115
  2. PREDNISONE (PREDNISONE) (UNKNOWN) [Concomitant]
  3. DEXAMETHASONE (DEXAMETHASONE) (UNKNOWN) [Concomitant]
  4. TRAMADOL (TRAMADOL) (UNKNOWN) [Concomitant]
  5. NAPROXEN (NAPROXEN) (UNKNOWN) [Concomitant]
  6. GABAPENTIN (GABAPENTIN) (UNKNOWN) (GABAPENTIN) [Concomitant]
  7. ONDANSETRON (ONDANSETRON) (UNKNOWN) [Concomitant]
  8. ACYCLOVIR (ACICLOVIR) (UNKNOWN) [Concomitant]
  9. SULINDAC (SULINDAC) (UNKNOWN) [Concomitant]
  10. OMEPRAZOLE (OMEPRAZOLE) (UNKNOWN) [Concomitant]
  11. OXYCODONE (OXYCODONE) (UNKNOWN) (OXYCODONE) [Concomitant]
  12. OXYCODONE-ACETAMINOPHEN (OXYCOCET) (UNKNOWN) [Concomitant]
  13. LAXATIVE (SENNOSIDE A+B) (SUPPOSITORY) [Concomitant]
  14. CARISOPRODOL (CARISOPRODOL) (UNKNOWN) [Concomitant]
  15. VELCADE (UNKNOWN) [Concomitant]

REACTIONS (3)
  - Rash [None]
  - Pigmentation disorder [None]
  - Skin discolouration [None]
